FAERS Safety Report 9373048 (Version 1)
Quarter: 2013Q2

REPORT INFORMATION
  Report Type: Report from Study
  Country: US (occurrence: US)
  Receive Date: 20130627
  Receipt Date: 20130627
  Transmission Date: 20140414
  Serious: Yes (Other)
  Sender: FDA-Public Use
  Company Number: US-ROCHE-1240183

PATIENT
  Age: 63 Year
  Sex: Male

DRUGS (14)
  1. XOLAIR [Suspect]
     Indication: ASTHMA
     Route: 065
  2. XOLAIR [Suspect]
     Indication: DERMATITIS
  3. XOLAIR [Suspect]
     Indication: RHINITIS ALLERGIC
  4. BACTRIM [Suspect]
     Indication: PRODUCT USED FOR UNKNOWN INDICATION
     Route: 065
  5. ALBUTEROL [Concomitant]
  6. ATROVENT [Concomitant]
  7. THEOPHYLLINE [Concomitant]
  8. PULMICORT NEBULIZER [Concomitant]
  9. MONTELUKAST [Concomitant]
  10. SPIRONOLACTONE [Concomitant]
  11. COUMADIN [Concomitant]
  12. LOVENOX 40 [Concomitant]
  13. ASA [Concomitant]
  14. LUPRON DEPOT [Concomitant]

REACTIONS (22)
  - Hip arthroplasty [Unknown]
  - Fall [Unknown]
  - Weight bearing difficulty [Unknown]
  - Nasal disorder [Unknown]
  - Osteoporosis [Unknown]
  - Vascular insufficiency [Unknown]
  - Otitis externa [Unknown]
  - Deep vein thrombosis [Unknown]
  - Prostate cancer metastatic [Unknown]
  - Ear infection [Unknown]
  - Nasal turbinate abnormality [Unknown]
  - Nasal mucosal disorder [Unknown]
  - Wheezing [Unknown]
  - Respiratory disorder [Unknown]
  - Erythema [Unknown]
  - Skin exfoliation [Unknown]
  - Xerosis [Unknown]
  - Lichenification [Unknown]
  - Oedema [Unknown]
  - Umbilical hernia [Unknown]
  - Gastrointestinal disorder [Unknown]
  - Hypersensitivity [Unknown]
